FAERS Safety Report 24125858 (Version 2)
Quarter: 2024Q3

REPORT INFORMATION
  Report Type: Spontaneous
  Country: US (occurrence: US)
  Receive Date: 20240723
  Receipt Date: 20240910
  Transmission Date: 20241017
  Serious: Yes (Other)
  Sender: HIKMA
  Company Number: HIKM2405792

PATIENT
  Sex: Male

DRUGS (1)
  1. FLECAINIDE ACETATE [Suspect]
     Active Substance: FLECAINIDE ACETATE
     Indication: Cardiac ablation
     Dosage: 100 MILLIGRAM, QD
     Route: 048
     Dates: start: 20211213, end: 20240207

REACTIONS (5)
  - Deafness [Recovering/Resolving]
  - Balance disorder [Not Recovered/Not Resolved]
  - Vestibular nystagmus [Not Recovered/Not Resolved]
  - Condition aggravated [Not Recovered/Not Resolved]
  - Fall [Not Recovered/Not Resolved]
